FAERS Safety Report 12765637 (Version 1)
Quarter: 2016Q3

REPORT INFORMATION
  Report Type: Spontaneous
  Country: US (occurrence: US)
  Receive Date: 20160920
  Receipt Date: 20160920
  Transmission Date: 20161109
  Serious: No
  Sender: FDA-Public Use
  Company Number: None

PATIENT
  Age: 57 Year
  Sex: Male
  Weight: 103 kg

DRUGS (1)
  1. 0.9% SODIUM CHLOIRDE INJECTION [Suspect]
     Active Substance: SODIUM CHLORIDE

REACTIONS (5)
  - Air embolism [None]
  - Chest pain [None]
  - Dyspnoea [None]
  - Cardiac disorder [None]
  - Procedural complication [None]

NARRATIVE: CASE EVENT DATE: 20160912
